FAERS Safety Report 4386718-8 (Version None)
Quarter: 2004Q2

REPORT INFORMATION
  Report Type: 
  Country: None (occurrence: None)
  Receive Date: 20040607
  Receipt Date: 20030602
  Transmission Date: 20050107
  Serious: Yes (Other)
  Sender: FDA-Public Use
  Company Number: 339427

PATIENT
  Age: 29 Year
  Sex: Female
  Weight: 62.6 kg

DRUGS (2)
  1. ACCUTANE [Suspect]
     Indication: ACNE
     Dosage: 40 MG 1 PER DAY ORAL
     Route: 048
     Dates: start: 20011204, end: 20020731
  2. ORAL CONTRACEPTIVE PILL (ORAL CONTRACEPTIVE NOS) [Concomitant]

REACTIONS (3)
  - ANXIETY [None]
  - DEPRESSION [None]
  - MOOD SWINGS [None]
